FAERS Safety Report 10080071 (Version 2)
Quarter: 2014Q2

REPORT INFORMATION
  Report Type: Spontaneous
  Country: US (occurrence: US)
  Receive Date: 20140415
  Receipt Date: 20140415
  Transmission Date: 20141212
  Serious: Yes (Other)
  Sender: FDA-Public Use
  Company Number: US-EXELIXIS-CABO-13002694

PATIENT
  Sex: Female

DRUGS (5)
  1. COMETRIQ [Suspect]
     Indication: MASTOCYTOSIS
     Dosage: 140 MG, QD
     Route: 048
     Dates: start: 20130410, end: 2013
  2. COMETRIQ [Suspect]
     Dosage: 60 MG, QD
     Route: 048
     Dates: start: 2013, end: 2013
  3. COMETRIQ [Suspect]
     Dosage: 140 MG, QD
     Route: 048
     Dates: start: 2013, end: 20130918
  4. COMETRIQ [Suspect]
     Dosage: 60 MG, QD
     Route: 048
     Dates: start: 20131006
  5. DOXEPIN [Concomitant]

REACTIONS (8)
  - Cholecystectomy [Unknown]
  - Pallor [Unknown]
  - Mood altered [Unknown]
  - Stomatitis [Not Recovered/Not Resolved]
  - Fatigue [Not Recovered/Not Resolved]
  - Diarrhoea [Not Recovered/Not Resolved]
  - Nausea [Recovering/Resolving]
  - Off label use [Unknown]
